FAERS Safety Report 5059197-5 (Version None)
Quarter: 2006Q3

REPORT INFORMATION
  Report Type: 
  Country: None (occurrence: None)
  Receive Date: 20060718
  Receipt Date: 20060629
  Transmission Date: 20061208
  Serious: Yes (Other)
  Sender: FDA-Public Use
  Company Number: US200606006260

PATIENT
  Age: 58 Year
  Sex: Female

DRUGS (21)
  1. CYMBALTA [Suspect]
     Indication: NEUROPATHY
     Dosage: 30 MG, DAILY (1/D)
     Dates: start: 20060524
  2. COUMADIN [Concomitant]
  3. ZETIA [Concomitant]
  4. PRAVACHOL [Concomitant]
  5. LIDODERM [Concomitant]
  6. ALLEGRA [Concomitant]
  7. TORSEMIDE [Concomitant]
  8. SONATA [Concomitant]
  9. POTASSIUM [Concomitant]
  10. NITRO PATCH (GLYCERYL TRINITRATE) [Concomitant]
  11. MICARDIS [Concomitant]
  12. DIGOXIN [Concomitant]
  13. SPIRONOLACTONE [Concomitant]
  14. FLEXERIL [Concomitant]
  15. SYNTHROID [Concomitant]
  16. TRAMADOL HCL [Concomitant]
  17. VALIUM [Concomitant]
  18. COREG [Concomitant]
  19. IRON [Concomitant]
  20. ALBUTEROL [Concomitant]
  21. LOVENOX [Concomitant]

REACTIONS (1)
  - INTERNATIONAL NORMALISED RATIO INCREASED [None]
